FAERS Safety Report 11737437 (Version 1)
Quarter: 2015Q4

REPORT INFORMATION
  Report Type: Spontaneous
  Country: US (occurrence: US)
  Receive Date: 20151110
  Receipt Date: 20151110
  Transmission Date: 20160304
  Serious: No
  Sender: FDA-Public Use
  Company Number: US-ELI_LILLY_AND_COMPANY-US201207002878

PATIENT
  Age: 89 Year
  Sex: Male

DRUGS (1)
  1. FORTEO [Suspect]
     Active Substance: TERIPARATIDE
     Indication: OSTEOPOROSIS
     Dosage: UNK, QD
     Dates: start: 201107, end: 201204

REACTIONS (7)
  - Feeling cold [Unknown]
  - Rash pruritic [Recovered/Resolved]
  - Pruritus [Unknown]
  - Weight decreased [Unknown]
  - Mental disorder [Unknown]
  - Skin swelling [Unknown]
  - Drug hypersensitivity [Unknown]

NARRATIVE: CASE EVENT DATE: 201202
